FAERS Safety Report 6003049-0 (Version None)
Quarter: 2008Q4

REPORT INFORMATION
  Report Type: 
  Country: None (occurrence: None)
  Receive Date: 20081215
  Receipt Date: 20081203
  Transmission Date: 20090506
  Serious: Yes (Other)
  Sender: FDA-Public Use
  Company Number: JP-PFIZER INC-2008100397

PATIENT

DRUGS (3)
  1. XALATAN [Suspect]
     Indication: OPEN ANGLE GLAUCOMA
     Dosage: UNK
     Route: 031
     Dates: start: 20081022, end: 20081117
  2. HYALURONATE SODIUM [Concomitant]
     Dosage: UNK
     Route: 031
     Dates: start: 20081022
  3. CYANOCOBALAMIN [Concomitant]
     Dosage: UNK
     Route: 031
     Dates: start: 20081022

REACTIONS (2)
  - EYE IRRITATION [None]
  - RHINALGIA [None]
